FAERS Safety Report 7295415-0 (Version None)
Quarter: 2011Q1

REPORT INFORMATION
  Report Type: 
  Country: None (occurrence: None)
  Receive Date: 20110216
  Receipt Date: 20110114
  Transmission Date: 20110831
  Serious: No
  Sender: FDA-Public Use
  Company Number: US-ABBOTT-11P-163-0697429-00

PATIENT
  Sex: Female
  Weight: 65.376 kg

DRUGS (3)
  1. SIMCOR [Suspect]
     Indication: BLOOD CHOLESTEROL
  2. ATENOLOL [Concomitant]
     Indication: BLOOD PRESSURE
  3. LISINOPRIL [Concomitant]
     Indication: HYPERTENSION

REACTIONS (1)
  - HEADACHE [None]
